FAERS Safety Report 23152482 (Version 1)
Quarter: 2023Q4

REPORT INFORMATION
  Report Type: Spontaneous
  Country: AU (occurrence: AU)
  Receive Date: 20231107
  Receipt Date: 20231107
  Transmission Date: 20240109
  Serious: Yes (Other)
  Sender: FDA-Public Use
  Company Number: AU-STRIDES ARCOLAB LIMITED-2023SP016433

PATIENT
  Age: 7 Decade
  Sex: Male

DRUGS (8)
  1. PREDNISOLONE [Suspect]
     Active Substance: PREDNISOLONE
     Indication: Metastasis
     Dosage: 1 MILLIGRAM/KILOGRAM PER DAY
     Route: 048
  2. PREDNISOLONE [Suspect]
     Active Substance: PREDNISOLONE
     Indication: Pyelonephritis chronic
     Dosage: 50 MILLIGRAM, PER DAY, DOSE INCREASED
     Route: 048
  3. PREDNISOLONE [Suspect]
     Active Substance: PREDNISOLONE
     Dosage: 10 MILLIGRAM, PER DAY, DOSE REDUCED
     Route: 048
  4. PREDNISOLONE [Suspect]
     Active Substance: PREDNISOLONE
     Dosage: 50 MILLIGRAM, PER DAY, DOSE INCREASED AGAIN
     Route: 048
  5. PREDNISOLONE [Suspect]
     Active Substance: PREDNISOLONE
     Dosage: 75 MILLIGRAM, PER DAY
     Route: 048
  6. PREDNISOLONE [Suspect]
     Active Substance: PREDNISOLONE
     Dosage: 10 MILLIGRAM, PER DAY, DOSE REDUCED
     Route: 048
  7. AZATHIOPRINE [Suspect]
     Active Substance: AZATHIOPRINE
     Indication: Metastasis
     Dosage: 100 MILLIGRAM, PER DAY
     Route: 048
  8. AZATHIOPRINE [Suspect]
     Active Substance: AZATHIOPRINE
     Indication: Pyelonephritis chronic
     Dosage: 150 MILLIGRAM, PER DAY.
     Route: 048

REACTIONS (6)
  - Weight increased [Unknown]
  - Diabetes mellitus [Unknown]
  - Osteoporosis [Unknown]
  - Metabolic syndrome [Unknown]
  - Condition aggravated [Unknown]
  - Off label use [Unknown]
